FAERS Safety Report 9316689 (Version 1)
Quarter: 2013Q2

REPORT INFORMATION
  Report Type: Spontaneous
  Country: US (occurrence: US)
  Receive Date: 20130530
  Receipt Date: 20130530
  Transmission Date: 20140414
  Serious: Yes (Hospitalization, Other)
  Sender: FDA-Public Use
  Company Number: US-ASTELLAS-2013US004802

PATIENT
  Age: 56 Year
  Sex: Female

DRUGS (5)
  1. PROGRAF [Suspect]
     Indication: LIVER TRANSPLANT
     Dosage: 2 MG, BID
     Route: 048
     Dates: start: 2009, end: 20120703
  2. PROGRAF [Suspect]
     Dosage: 2 MG, BID
     Route: 048
     Dates: start: 20120707
  3. PROGRAF [Suspect]
     Dosage: 1 MG, BID
     Route: 048
  4. MYFORTIC [Suspect]
     Indication: LIVER TRANSPLANT
     Dosage: 720 MG, BID
     Route: 048
     Dates: start: 2009
  5. MYFORTIC [Suspect]
     Dosage: 360 MG, BID
     Route: 048
     Dates: start: 20120703

REACTIONS (15)
  - Anaemia macrocytic [Recovering/Resolving]
  - Renal failure acute [Recovering/Resolving]
  - Diarrhoea [Recovered/Resolved]
  - Renal impairment [Unknown]
  - Renal failure acute [Unknown]
  - Hypomagnesaemia [Recovering/Resolving]
  - Hypokalaemia [Recovering/Resolving]
  - Hyperglycaemia [Recovering/Resolving]
  - Hypocalcaemia [Recovering/Resolving]
  - Metabolic acidosis [Recovering/Resolving]
  - Hypertension [Recovering/Resolving]
  - Renal failure chronic [Unknown]
  - Nausea [Unknown]
  - Vomiting [Unknown]
  - Dry throat [Unknown]
